FAERS Safety Report 7998627-3 (Version None)
Quarter: 2011Q4

REPORT INFORMATION
  Report Type: 
  Country: None (occurrence: None)
  Receive Date: 20111221
  Receipt Date: 20111214
  Transmission Date: 20120403
  Serious: Yes (Other)
  Sender: FDA-Public Use
  Company Number: PHHY2011BE110177

PATIENT
  Age: 63 Year
  Sex: Female

DRUGS (1)
  1. CEFEPIME HYDROCHLORIDE [Suspect]
     Indication: FEBRILE NEUTROPENIA

REACTIONS (2)
  - METASTASES TO CENTRAL NERVOUS SYSTEM [None]
  - EPILEPSY [None]
